FAERS Safety Report 5368222-3 (Version None)
Quarter: 2007Q2

REPORT INFORMATION
  Report Type: 
  Country: None (occurrence: None)
  Receive Date: 20070625
  Receipt Date: 20070620
  Transmission Date: 20071010
  Serious: Yes (Death)
  Sender: FDA-Public Use
  Company Number: PHHO2007JP10367

PATIENT
  Age: 51 Year
  Sex: Male
  Weight: 62 kg

DRUGS (2)
  1. DIOVAN [Suspect]
     Indication: HYPERTENSION
     Dosage: 80 MG, QD
     Route: 048
     Dates: start: 20061017
  2. AMLODIN [Concomitant]

REACTIONS (1)
  - DEATH [None]
